FAERS Safety Report 8286887-3 (Version None)
Quarter: 2012Q2

REPORT INFORMATION
  Report Type: 
  Country: None (occurrence: None)
  Receive Date: 20120416
  Receipt Date: 20120406
  Transmission Date: 20120825
  Serious: Yes (Hospitalization)
  Sender: FDA-Public Use
  Company Number: US-BAYER-2012-033968

PATIENT
  Age: 39 Year
  Sex: Female

DRUGS (8)
  1. FLEXERIL [Concomitant]
     Dosage: 10 MG, QD
     Route: 048
  2. KETEK [Concomitant]
     Dosage: 400 MG, QD TWO TABLETS
     Route: 048
  3. ALBUTEROL [Concomitant]
     Dosage: 2 PUFFS EVERY 4-6 HOURS AS NEEDED
  4. GFN 600/PHENYLEPHRINE/200 [Concomitant]
     Dosage: 1 TABLET, BID
     Route: 048
  5. SALSALATE [Concomitant]
     Dosage: 2 TABLETS, BID
  6. YASMIN [Suspect]
  7. SALSALATE [Concomitant]
     Dosage: 5 MG, TID, 2 TABLETS TWICE DAILY AS NEEDED
     Route: 048
  8. PRILOSEC [Concomitant]
     Dosage: 20 MG, BID
     Route: 048

REACTIONS (1)
  - DEEP VEIN THROMBOSIS [None]
